FAERS Safety Report 8614247-1 (Version None)
Quarter: 2012Q3

REPORT INFORMATION
  Report Type: 
  Country: None (occurrence: None)
  Receive Date: 20120813
  Receipt Date: 20120813
  Transmission Date: 20120928
  Serious: Yes (Hospitalization)
  Sender: FDA-Public Use
  Company Number: None

PATIENT
  Age: 47 Year
  Sex: Male
  Weight: 97.7 kg

DRUGS (2)
  1. FISH OIL [Suspect]
     Dosage: 1000 MG TID PO
     Route: 048
     Dates: start: 20120514
  2. ASPIRIN [Suspect]
     Indication: PROPHYLAXIS
     Dosage: 162 MG EVERY DAY PO
     Route: 048
     Dates: start: 20110803

REACTIONS (12)
  - ABDOMINAL PAIN [None]
  - ANAEMIA [None]
  - HAEMORRHOIDAL HAEMORRHAGE [None]
  - RECTAL HAEMORRHAGE [None]
  - VOMITING [None]
  - DIZZINESS POSTURAL [None]
  - NAUSEA [None]
  - PHOTOSENSITIVITY REACTION [None]
  - WEIGHT DECREASED [None]
  - HEADACHE [None]
  - DIARRHOEA [None]
  - SERUM FERRITIN DECREASED [None]
